FAERS Safety Report 10085106 (Version 3)
Quarter: 2014Q2

REPORT INFORMATION
  Report Type: Report from Study
  Country: JP (occurrence: JP)
  Receive Date: 20140417
  Receipt Date: 20140522
  Transmission Date: 20141212
  Serious: Yes (Hospitalization)
  Sender: FDA-Public Use
  Company Number: JP-TAKEDA-2014TJP004203

PATIENT
  Age: 65 Year
  Sex: Female

DRUGS (5)
  1. ALOGLIPTIN [Suspect]
     Indication: TYPE 2 DIABETES MELLITUS
     Dosage: 25 MG, QD
     Route: 048
     Dates: start: 20121217, end: 20131202
  2. ACTOS TABLETS 30 [Suspect]
     Indication: TYPE 2 DIABETES MELLITUS
     Dosage: 15 MG, 1 DAYS
     Route: 048
     Dates: start: 20090316, end: 20131202
  3. UNISIA [Concomitant]
     Dosage: 1 DF, QD
     Route: 048
     Dates: start: 20100906, end: 20131202
  4. BLOPRESS [Concomitant]
     Dosage: 8 MG, 1 DAYS
     Route: 048
     Dates: start: 20090316, end: 20100906
  5. EC DOPARL [Concomitant]
     Dosage: 2 DF, 1 DAYS
     Route: 048
     Dates: start: 20090316, end: 20131202

REACTIONS (1)
  - Productive cough [Recovered/Resolved]
